FAERS Safety Report 6735126-0 (Version None)
Quarter: 2010Q2

REPORT INFORMATION
  Report Type: 
  Country: None (occurrence: None)
  Receive Date: 20100520
  Receipt Date: 20100520
  Transmission Date: 20101027
  Serious: Yes (Hospitalization, Disabling, Other)
  Sender: FDA-Public Use
  Company Number: None

PATIENT
  Sex: Female
  Weight: 63.5036 kg

DRUGS (1)
  1. HALOPERIDOL [Suspect]
     Indication: DEPRESSION
     Dosage: 0.5 MG 4 A DAY AT ONE TIME WAS TAKING 5 A DAY ORAL
     Route: 048
     Dates: start: 20050101, end: 20100101

REACTIONS (2)
  - MALAISE [None]
  - TARDIVE DYSKINESIA [None]
